FAERS Safety Report 8050053-7 (Version None)
Quarter: 2011Q4

REPORT INFORMATION
  Report Type: 
  Country: None (occurrence: None)
  Receive Date: 20111212
  Receipt Date: 20111115
  Transmission Date: 20120403
  Serious: Yes (Other)
  Sender: FDA-Public Use
  Company Number: PHEH2011US009000

PATIENT
  Age: 44 Year
  Sex: Female

DRUGS (3)
  1. NEOSPORIN (NEOMYCIN SULFATE, POLYMYXIN SULFATE) [Concomitant]
  2. EXTAVIA [Suspect]
     Indication: MULTIPLE SCLEROSIS
     Dosage: SUBCUTANEOUS
     Route: 058
  3. ANTIBIOTICS (NO INGREDIENT/SUBSTANCES) [Concomitant]

REACTIONS (12)
  - INJECTION SITE REACTION [None]
  - INJECTION SITE HYPERSENSITIVITY [None]
  - INJECTION SITE NECROSIS [None]
  - INJECTION SITE INFLAMMATION [None]
  - INJECTION SITE MASS [None]
  - INJECTION SITE ERYTHEMA [None]
  - INJECTION SITE URTICARIA [None]
  - INJECTION SITE PAIN [None]
  - MALAISE [None]
  - INJECTION SITE SCAB [None]
  - INJECTION SITE HAEMATOMA [None]
  - INJECTION SITE SCAR [None]
